FAERS Safety Report 25472139 (Version 1)
Quarter: 2025Q2

REPORT INFORMATION
  Report Type: Spontaneous
  Country: US (occurrence: US)
  Receive Date: 20250624
  Receipt Date: 20250624
  Transmission Date: 20250717
  Serious: No
  Sender: ROCHE
  Company Number: US-ROCHE-10000316068

PATIENT
  Sex: Female

DRUGS (6)
  1. AVASTIN [Suspect]
     Active Substance: BEVACIZUMAB
     Indication: Age-related macular degeneration
     Route: 031
  2. Generic Cosopt [Concomitant]
     Indication: Glaucoma
     Route: 047
  3. IYUZEH [Concomitant]
     Active Substance: LATANOPROST
     Indication: Glaucoma
     Route: 047
  4. MINERALS\VITAMINS [Concomitant]
     Active Substance: MINERALS\VITAMINS
  5. VITAMIN D3 [Concomitant]
     Active Substance: CHOLECALCIFEROL
  6. FISH OIL [Concomitant]
     Active Substance: FISH OIL
     Route: 048

REACTIONS (5)
  - Off label use [Unknown]
  - Hypertension [Unknown]
  - Body height decreased [Unknown]
  - Off label use [Unknown]
  - Off label use [Unknown]
